FAERS Safety Report 5713293-5 (Version None)
Quarter: 2008Q2

REPORT INFORMATION
  Report Type: 
  Country: None (occurrence: None)
  Receive Date: 20080422
  Receipt Date: 20080414
  Transmission Date: 20081010
  Serious: Yes (Hospitalization, Disabling, Other)
  Sender: FDA-Public Use
  Company Number: US-PFIZER INC-2006128173

PATIENT
  Sex: Male

DRUGS (2)
  1. BEXTRA [Suspect]
     Dates: start: 20030528, end: 20030701
  2. ACETYLSALICYLIC ACID SRT [Concomitant]

REACTIONS (7)
  - ANAEMIA [None]
  - CEREBROVASCULAR ACCIDENT [None]
  - CORONARY ARTERY INSUFFICIENCY [None]
  - DIABETES MELLITUS [None]
  - HYPERCHOLESTEROLAEMIA [None]
  - HYPERLIPIDAEMIA [None]
  - HYPERTENSION [None]
